FAERS Safety Report 19307655 (Version 1)
Quarter: 2021Q2

REPORT INFORMATION
  Report Type: Spontaneous
  Country: US (occurrence: US)
  Receive Date: 20210525
  Receipt Date: 20210525
  Transmission Date: 20210717
  Serious: Yes (Death)
  Sender: FDA-Public Use
  Company Number: None

PATIENT
  Age: 60 Year
  Sex: Female

DRUGS (1)
  1. BOTOX [Suspect]
     Active Substance: ONABOTULINUMTOXINA
     Indication: BLEPHAROSPASM
     Dosage: ?          OTHER FREQUENCY:UNKNOWN;?
     Route: 030
     Dates: start: 20210420, end: 20210515

REACTIONS (1)
  - Death [None]

NARRATIVE: CASE EVENT DATE: 20210515
